FAERS Safety Report 9493411 (Version 1)
Quarter: 2013Q3

REPORT INFORMATION
  Report Type: Spontaneous
  Country: US (occurrence: US)
  Receive Date: 20130902
  Receipt Date: 20130902
  Transmission Date: 20140515
  Serious: No
  Sender: FDA-Public Use
  Company Number: US-009507513-1308USA010895

PATIENT
  Sex: Female

DRUGS (5)
  1. CLARITIN [Suspect]
     Indication: HYPERSENSITIVITY
     Dosage: 10 MG, ONCE
     Route: 048
  2. CLARITIN [Suspect]
     Indication: URTICARIA
  3. CLARITIN [Suspect]
     Indication: RASH
  4. CLARITIN [Suspect]
     Indication: PRURITUS
  5. CLARITIN [Suspect]
     Indication: MEDICAL OBSERVATION

REACTIONS (3)
  - Somnolence [Unknown]
  - Therapeutic response unexpected [Unknown]
  - Off label use [Unknown]
